FAERS Safety Report 7967231-5 (Version None)
Quarter: 2011Q4

REPORT INFORMATION
  Report Type: 
  Country: None (occurrence: None)
  Receive Date: 20111208
  Receipt Date: 20111208
  Transmission Date: 20120403
  Serious: Yes (Death, Hospitalization)
  Sender: FDA-Public Use
  Company Number: None

PATIENT
  Age: 71 Year
  Sex: Male

DRUGS (15)
  1. IMURAN [Concomitant]
  2. LOSARTAN POTASSIUM [Concomitant]
  3. REVLIMID [Suspect]
     Indication: MYELODYSPLASTIC SYNDROME
     Dosage: REVLIMID 5MG DAILY X21D ORALLY
     Route: 048
     Dates: start: 20111112, end: 20111123
  4. VICODIN [Concomitant]
  5. RANITIDINE [Concomitant]
  6. VITAMINE E [Concomitant]
  7. ONDANSETRON [Concomitant]
  8. K-TAB [Concomitant]
  9. TERAZOSIN [Concomitant]
  10. CYSLOSPORINE [Concomitant]
  11. GLIPIZIDE [Concomitant]
  12. APAP TAB [Concomitant]
  13. CALCIUM CARBONATE + VITAMIN D3 [Concomitant]
  14. METOPROLOL TARTRATE [Concomitant]
  15. ASCORBIC ACID [Concomitant]

REACTIONS (12)
  - LUNG INFILTRATION [None]
  - ARTHRALGIA [None]
  - MYCOBACTERIUM TEST POSITIVE [None]
  - DYSARTHRIA [None]
  - ASTHENIA [None]
  - PYREXIA [None]
  - CEREBRAL INFARCTION [None]
  - CONFUSIONAL STATE [None]
  - PLATELET COUNT DECREASED [None]
  - HAEMOGLOBIN DECREASED [None]
  - SPUTUM CULTURE POSITIVE [None]
  - CARDIO-RESPIRATORY ARREST [None]
